FAERS Safety Report 4534694-7 (Version None)
Quarter: 2004Q4

REPORT INFORMATION
  Report Type: 
  Country: None (occurrence: None)
  Receive Date: 20041222
  Receipt Date: 20031105
  Transmission Date: 20050328
  Serious: No
  Sender: FDA-Public Use
  Company Number: US-BRISTOL-MYERS SQUIBB COMPANY-12428272

PATIENT
  Age: 63 Year
  Sex: Female

DRUGS (2)
  1. PRAVACHOL [Suspect]
  2. PLAVIX [Interacting]

REACTIONS (3)
  - BREAST PAIN [None]
  - DRUG INTERACTION [None]
  - SLEEP DISORDER [None]
